FAERS Safety Report 5447442-3 (Version None)
Quarter: 2007Q3

REPORT INFORMATION
  Report Type: 
  Country: None (occurrence: None)
  Receive Date: 20070905
  Receipt Date: 20070905
  Transmission Date: 20080115
  Serious: Yes (Other)
  Sender: FDA-Public Use
  Company Number: None

PATIENT
  Age: 27 Year
  Sex: Female
  Weight: 102.0593 kg

DRUGS (1)
  1. DEPO-PROVERA [Suspect]
     Indication: CONTRACEPTION
     Dosage: 1-SHOT EVERY THREE MONTHS
     Dates: start: 20070615, end: 20070902

REACTIONS (4)
  - FOOD ALLERGY [None]
  - HAEMORRHAGE [None]
  - MUSCLE SPASMS [None]
  - PAIN [None]
